FAERS Safety Report 6756915-2 (Version None)
Quarter: 2010Q2

REPORT INFORMATION
  Report Type: 
  Country: None (occurrence: None)
  Receive Date: 20100603
  Receipt Date: 20100603
  Transmission Date: 20101027
  Serious: No
  Sender: FDA-Public Use
  Company Number: None

PATIENT
  Age: 65 Year
  Sex: Male
  Weight: 65 kg

DRUGS (1)
  1. HYDROMORPHONE HCL [Suspect]
     Indication: PAIN
     Dosage: 50 MG PER HOUR IV
     Route: 042
     Dates: start: 20091123, end: 20091127

REACTIONS (2)
  - MUSCLE TWITCHING [None]
  - SEDATION [None]
